FAERS Safety Report 14362521 (Version 3)
Quarter: 2018Q2

REPORT INFORMATION
  Report Type: Report from Study
  Country: US (occurrence: US)
  Receive Date: 20180108
  Receipt Date: 20180406
  Transmission Date: 20180711
  Serious: Yes (Death, Hospitalization)
  Sender: FDA-Public Use
  Company Number: PHEH2018US000758

PATIENT
  Sex: Male
  Weight: 102 kg

DRUGS (1)
  1. EXJADE [Suspect]
     Active Substance: DEFERASIROX
     Indication: CHRONIC MYELOMONOCYTIC LEUKAEMIA
     Route: 065

REACTIONS (4)
  - Renal failure [Unknown]
  - Product use in unapproved indication [Unknown]
  - Chronic myelomonocytic leukaemia [Fatal]
  - Dyspnoea [Unknown]
